FAERS Safety Report 15606844 (Version 2)
Quarter: 2018Q4

REPORT INFORMATION
  Report Type: Spontaneous
  Country: CA (occurrence: CA)
  Receive Date: 20181112
  Receipt Date: 20181221
  Transmission Date: 20190205
  Serious: Yes (Hospitalization, Other)
  Sender: FDA-Public Use
  Company Number: CA-GLAXOSMITHKLINE-CA2018GSK144578

PATIENT
  Sex: Female

DRUGS (1)
  1. TRELEGY ELLIPTA [Suspect]
     Active Substance: FLUTICASONE FUROATE\UMECLIDINIUM BROMIDE\VILANTEROL TRIFENATATE
     Indication: CHRONIC OBSTRUCTIVE PULMONARY DISEASE
     Dosage: UNK UNK, QD

REACTIONS (9)
  - Pneumonia [Unknown]
  - Headache [Unknown]
  - Incorrect dose administered [Unknown]
  - Memory impairment [Unknown]
  - Malaise [Unknown]
  - Viral infection [Unknown]
  - Fatigue [Unknown]
  - Product dose omission [Unknown]
  - Asthenia [Unknown]
